FAERS Safety Report 9648804 (Version 1)
Quarter: 2013Q4

REPORT INFORMATION
  Report Type: Spontaneous
  Country: US (occurrence: US)
  Receive Date: 20131028
  Receipt Date: 20131028
  Transmission Date: 20140711
  Serious: Yes (Other)
  Sender: FDA-Public Use
  Company Number: US-SA-2013SA107161

PATIENT
  Age: 75 Year
  Sex: Male

DRUGS (2)
  1. LANTUS [Suspect]
     Indication: TYPE 2 DIABETES MELLITUS
     Dosage: HE TOOK 32 UNITS TOTAL WITH HIS LANTUS INSULIN YESTERDAY. DOSE:60 UNIT(S)
     Route: 051
  2. HUMALOG [Suspect]
     Dosage: HE INCREASED HIS MEALTIME HUMALOG FROM 4 UNITS TO 8 UNITS . DOSE:4 UNIT(S)
     Route: 065

REACTIONS (5)
  - Renal failure [Unknown]
  - Liver disorder [Unknown]
  - Discomfort [Unknown]
  - Blood glucose increased [Unknown]
  - Asthenia [Unknown]
